FAERS Safety Report 4704596-1 (Version None)
Quarter: 2005Q2

REPORT INFORMATION
  Report Type: 
  Country: None (occurrence: None)
  Receive Date: 20050629
  Receipt Date: 20050615
  Transmission Date: 20051028
  Serious: Yes (Life-Threatening, Hospitalization)
  Sender: FDA-Public Use
  Company Number: 2005-BP-00576RO

PATIENT
  Age: 59 Year
  Sex: Female

DRUGS (6)
  1. LEUCOVORIN CALCIUM [Suspect]
     Indication: COLON CANCER
     Dosage: 75 MG/DAY (NR), PO
     Route: 048
     Dates: start: 20041007, end: 20041103
  2. UFT [Suspect]
     Indication: COLON CANCER
     Dosage: 5 CAPSULES/DAY (NR), PO
     Route: 048
     Dates: start: 20041007, end: 20041103
  3. EXCELASE (EXCELASE) [Concomitant]
  4. DAI-KENCHU-TO (GINGER + GINSENG + JAPANESE PEPPER (HERBAL PREPARATION) [Concomitant]
  5. FAMOTIDINE [Concomitant]
  6. FUROSEMIDE [Concomitant]

REACTIONS (32)
  - ABDOMINAL WALL ABSCESS [None]
  - ABDOMINAL WALL DISORDER [None]
  - ACUTE PRERENAL FAILURE [None]
  - ALANINE AMINOTRANSFERASE INCREASED [None]
  - ASPARTATE AMINOTRANSFERASE INCREASED [None]
  - BLOOD ALBUMIN DECREASED [None]
  - BLOOD CHLORIDE DECREASED [None]
  - BLOOD CREATININE INCREASED [None]
  - BLOOD LACTATE DEHYDROGENASE INCREASED [None]
  - BLOOD PH INCREASED [None]
  - BLOOD PRESSURE IMMEASURABLE [None]
  - BLOOD UREA INCREASED [None]
  - DEHYDRATION [None]
  - DIARRHOEA [None]
  - DISSEMINATED INTRAVASCULAR COAGULATION [None]
  - HAEMATEMESIS [None]
  - HAEMATOCRIT DECREASED [None]
  - HAEMOGLOBIN DECREASED [None]
  - HYPOTENSION [None]
  - MELAENA [None]
  - NAUSEA [None]
  - PCO2 DECREASED [None]
  - PLATELET COUNT DECREASED [None]
  - PNEUMONIA ASPIRATION [None]
  - PROTEIN TOTAL DECREASED [None]
  - PROTEIN TOTAL INCREASED [None]
  - PULSE ABSENT [None]
  - PYREXIA [None]
  - RED BLOOD CELL COUNT DECREASED [None]
  - VOMITING [None]
  - WHITE BLOOD CELL COUNT DECREASED [None]
  - WHITE BLOOD CELL COUNT INCREASED [None]
